FAERS Safety Report 21178652 (Version 1)
Quarter: 2022Q3

REPORT INFORMATION
  Report Type: Spontaneous
  Country: US (occurrence: None)
  Receive Date: 20220804
  Receipt Date: 20220804
  Transmission Date: 20221027
  Serious: No
  Sender: FDA-Public Use
  Company Number: None

PATIENT
  Age: 28 Year
  Sex: Male
  Weight: 79.38 kg

DRUGS (3)
  1. XELJANZ [Suspect]
     Active Substance: TOFACITINIB CITRATE
     Indication: Ankylosing spondylitis
     Dosage: FREQUENCY : TWICE A DAY;?
     Route: 048
     Dates: start: 202203
  2. XELJANZ [Suspect]
     Active Substance: TOFACITINIB CITRATE
     Indication: Sacroiliitis
  3. XELJANZ [Suspect]
     Active Substance: TOFACITINIB CITRATE
     Indication: Psoriatic arthropathy

REACTIONS (3)
  - COVID-19 [None]
  - Illness [None]
  - Therapy interrupted [None]
